FAERS Safety Report 8548842-5 (Version None)
Quarter: 2012Q3

REPORT INFORMATION
  Report Type: 
  Country: None (occurrence: None)
  Receive Date: 20120730
  Receipt Date: 20120720
  Transmission Date: 20120928
  Serious: Yes (Hospitalization, Other)
  Sender: FDA-Public Use
  Company Number: US-US-EMD SERONO, INC.-7107201

PATIENT
  Sex: Female

DRUGS (9)
  1. ABILIFY [Concomitant]
     Indication: DEPRESSION
  2. INSULIN [Concomitant]
     Indication: TYPE 1 DIABETES MELLITUS
     Dosage: TWO TO THREE TIMES DAILY
     Dates: start: 20110101
  3. LEXAPRO [Concomitant]
     Indication: DEPRESSION
  4. ABILIFY [Concomitant]
     Indication: ANXIETY
  5. GABAPENTIN [Concomitant]
     Indication: PAIN
  6. REBIF [Suspect]
     Indication: MULTIPLE SCLEROSIS
     Route: 058
     Dates: start: 20101027
  7. LEXAPRO [Concomitant]
     Indication: ANXIETY
  8. ATIVAN [Concomitant]
     Indication: ANXIETY
  9. ATIVAN [Concomitant]
     Indication: DEPRESSION

REACTIONS (9)
  - PAIN IN EXTREMITY [None]
  - HYPERSOMNIA [None]
  - INJECTION SITE HAEMATOMA [None]
  - INJECTION SITE PAIN [None]
  - CHRONIC OBSTRUCTIVE PULMONARY DISEASE [None]
  - INJECTION SITE PRURITUS [None]
  - FAECAL INCONTINENCE [None]
  - MYOCARDIAL ISCHAEMIA [None]
  - INJECTION SITE ERYTHEMA [None]
